FAERS Safety Report 7553613-2 (Version None)
Quarter: 2011Q2

REPORT INFORMATION
  Report Type: 
  Country: None (occurrence: None)
  Receive Date: 20110617
  Receipt Date: 20110526
  Transmission Date: 20111010
  Serious: Yes (Hospitalization, Other)
  Sender: FDA-Public Use
  Company Number: CA-ELI_LILLY_AND_COMPANY-CA201105007569

PATIENT
  Sex: Male
  Weight: 90.6 kg

DRUGS (11)
  1. ZYPREXA [Suspect]
     Dosage: 20 MG, QD
  2. TEGRETOL [Concomitant]
  3. ZYPREXA [Suspect]
     Dosage: 15 MG, EACH MORNING
  4. FLUANXOL [Concomitant]
  5. ZYPREXA [Suspect]
     Indication: SCHIZOAFFECTIVE DISORDER
     Dosage: 30 MG, QD
  6. ZYPREXA [Suspect]
     Dosage: 5 MG, QD
  7. CELEXA [Concomitant]
  8. IMOVANE [Concomitant]
  9. RISPERIDONE [Concomitant]
  10. SEROQUEL [Concomitant]
  11. ZYPREXA [Suspect]
     Dosage: 25 MG, QD

REACTIONS (8)
  - HYPERGLYCAEMIA [None]
  - DIABETES MELLITUS [None]
  - HYPERTENSION [None]
  - DYSLIPIDAEMIA [None]
  - INAPPROPRIATE ANTIDIURETIC HORMONE SECRETION [None]
  - ASPARTATE AMINOTRANSFERASE INCREASED [None]
  - ALANINE AMINOTRANSFERASE INCREASED [None]
  - OVERDOSE [None]
